FAERS Safety Report 5874627-4 (Version None)
Quarter: 2008Q3

REPORT INFORMATION
  Report Type: 
  Country: None (occurrence: None)
  Receive Date: 20080902
  Receipt Date: 20080825
  Transmission Date: 20090109
  Serious: Yes (Hospitalization)
  Sender: FDA-Public Use
  Company Number: OMPQ-GE-0808S-0703

PATIENT
  Sex: Female

DRUGS (1)
  1. ACCUPAQUE(IOHEXOL) [Suspect]
     Indication: PULMONARY EMBOLISM

REACTIONS (6)
  - BLOOD BILIRUBIN INCREASED [None]
  - GENERALISED ERYTHEMA [None]
  - HEPATIC FUNCTION ABNORMAL [None]
  - REACTION TO DRUG EXCIPIENTS [None]
  - SKIN EXFOLIATION [None]
  - TRANSAMINASES INCREASED [None]
